FAERS Safety Report 14511459 (Version 1)
Quarter: 2018Q1

REPORT INFORMATION
  Report Type: Spontaneous
  Country: US (occurrence: US)
  Receive Date: 20180209
  Receipt Date: 20180209
  Transmission Date: 20180509
  Serious: No
  Sender: FDA-Public Use
  Company Number: US-ENDO PHARMACEUTICALS INC-2016-000551

PATIENT
  Age: 61 Year
  Sex: Male
  Weight: 79.37 kg

DRUGS (3)
  1. TESTOSTERONE GEL [Suspect]
     Active Substance: TESTOSTERONE
     Dosage: 20 MG, DAILY
     Route: 061
     Dates: start: 2016
  2. TESTOSTERONE GEL [Suspect]
     Active Substance: TESTOSTERONE
     Dosage: 40 MG, DAILY
     Route: 061
     Dates: start: 201512, end: 2016
  3. TESTOSTERONE GEL [Suspect]
     Active Substance: TESTOSTERONE
     Indication: BLOOD TESTOSTERONE DECREASED
     Dosage: 40 MG, DAILY
     Route: 061

REACTIONS (6)
  - Drug dose omission [Unknown]
  - Incorrect dose administered [Unknown]
  - Accidental exposure to product [Recovered/Resolved]
  - Product physical issue [Unknown]
  - Blood testosterone decreased [Not Recovered/Not Resolved]
  - Blood testosterone increased [Recovered/Resolved]

NARRATIVE: CASE EVENT DATE: 2016
